FAERS Safety Report 25133303 (Version 2)
Quarter: 2025Q3

REPORT INFORMATION
  Report Type: Report from Study
  Country: US (occurrence: US)
  Receive Date: 20250328
  Receipt Date: 20250810
  Transmission Date: 20251020
  Serious: Yes (Hospitalization, Other)
  Sender: ALEXION PHARMACEUTICALS
  Company Number: US-AstraZeneca-2016SF04592

PATIENT
  Age: 73 Year
  Sex: Male
  Weight: 63.503 kg

DRUGS (4)
  1. SYMBICORT [Suspect]
     Active Substance: BUDESONIDE\FORMOTEROL FUMARATE DIHYDRATE
     Indication: Dyspnoea
  2. LEVAQUIN [Concomitant]
     Active Substance: LEVOFLOXACIN
     Indication: Pneumonia
     Dosage: 750 MILLIGRAM, QD
     Dates: start: 20160928
  3. PREDNISONE [Concomitant]
     Active Substance: PREDNISONE
     Indication: Dyspnoea
     Dosage: 40 MILLIGRAM, BID
     Dates: start: 20160928
  4. ALBUTEROL SULFATE\IPRATROPIUM BROMIDE [Concomitant]
     Active Substance: ALBUTEROL SULFATE\IPRATROPIUM BROMIDE
     Indication: Dyspnoea

REACTIONS (8)
  - Dyspnoea [Unknown]
  - Lip and/or oral cavity cancer [Unknown]
  - Pneumonia [Unknown]
  - Dysphagia [Unknown]
  - Body height decreased [Unknown]
  - Sensation of foreign body [Unknown]
  - Product use in unapproved indication [Unknown]
  - Off label use [Unknown]

NARRATIVE: CASE EVENT DATE: 20150101
